FAERS Safety Report 11157235 (Version 1)
Quarter: 2015Q2

REPORT INFORMATION
  Report Type: Spontaneous
  Country: US (occurrence: US)
  Receive Date: 20150602
  Receipt Date: 20150602
  Transmission Date: 20150821
  Serious: Yes (Other)
  Sender: FDA-Public Use
  Company Number: US-LUNDBECK-DKLU1113270

PATIENT
  Age: 19 Year
  Sex: Female

DRUGS (2)
  1. SABRIL [Suspect]
     Active Substance: VIGABATRIN
     Indication: TEMPORAL LOBE EPILEPSY
     Route: 048
     Dates: start: 20140610
  2. SABRIL [Suspect]
     Active Substance: VIGABATRIN
     Indication: EPILEPSY

REACTIONS (3)
  - Drooling [Unknown]
  - Fatigue [Unknown]
  - Suicidal ideation [Unknown]

NARRATIVE: CASE EVENT DATE: 20150529
